FAERS Safety Report 4976769-4 (Version None)
Quarter: 2006Q2

REPORT INFORMATION
  Report Type: 
  Country: None (occurrence: None)
  Receive Date: 20060419
  Receipt Date: 20060208
  Transmission Date: 20061013
  Serious: Yes (Life-Threatening, Hospitalization, Disabling, Other)
  Sender: FDA-Public Use
  Company Number: GB-GLAXOSMITHKLINE-B0409588A

PATIENT
  Age: 70 Year
  Sex: Male

DRUGS (4)
  1. LEUKERAN [Suspect]
     Route: 048
     Dates: start: 20051220, end: 20051229
  2. ZYLORIC [Suspect]
     Dosage: 300MG PER DAY
     Route: 048
     Dates: start: 20051221, end: 20060113
  3. WARFARIN SODIUM [Concomitant]
     Indication: DEEP VEIN THROMBOSIS
     Dosage: 4MG PER DAY
     Dates: end: 20060117
  4. AMLODIPINE [Concomitant]
     Dosage: 5MG PER DAY

REACTIONS (12)
  - APLASTIC ANAEMIA [None]
  - ARTHRALGIA [None]
  - DRUG INEFFECTIVE [None]
  - HEADACHE [None]
  - MALAISE [None]
  - NEUTROPENIC SEPSIS [None]
  - NIGHT SWEATS [None]
  - PURPURA [None]
  - RASH [None]
  - RASH GENERALISED [None]
  - THROMBOCYTOPENIA [None]
  - TREMOR [None]
